FAERS Safety Report 9686856 (Version 1)
Quarter: 2013Q4

REPORT INFORMATION
  Report Type: Spontaneous
  Country: TR (occurrence: TR)
  Receive Date: 20131113
  Receipt Date: 20131113
  Transmission Date: 20140711
  Serious: Yes (Other)
  Sender: FDA-Public Use
  Company Number: TR-B.I. PHARMACEUTICALS,INC./RIDGEFIELD-2013-BI-35924GD

PATIENT
  Sex: Female

DRUGS (5)
  1. IPRATROPIUMBROMID [Suspect]
     Indication: ASTHMA
  2. SALBUTAMOL SULFATE [Suspect]
     Indication: ASTHMA
  3. MONTELUKAST SODIUM [Suspect]
     Indication: ASTHMA
     Dosage: 10 MG
  4. VITAMINS [Suspect]
  5. FOLIC ACID [Suspect]

REACTIONS (1)
  - Vanishing twin syndrome [Unknown]
